FAERS Safety Report 10396933 (Version 1)
Quarter: 2014Q3

REPORT INFORMATION
  Report Type: Other
  Country: CH (occurrence: CH)
  Receive Date: 20140820
  Receipt Date: 20140820
  Transmission Date: 20150326
  Serious: Yes (Congenital Anomaly, Other)
  Sender: FDA-Public Use
  Company Number: CH-VERTEX PHARMACEUTICALS (CANADA)-2014-003502

PATIENT
  Age: 0 Year
  Sex: Female
  Weight: 3.29 kg

DRUGS (6)
  1. INCIVO [Suspect]
     Active Substance: TELAPREVIR
     Indication: HEPATITIS C
     Dosage: FATHER^S DOSING
     Route: 064
     Dates: end: 201208
  2. RETIN-A [Suspect]
     Active Substance: TRETINOIN
     Indication: PRODUCT USED FOR UNKNOWN INDICATION
     Route: 064
  3. PEGASYS [Suspect]
     Active Substance: PEGINTERFERON ALFA-2A
     Indication: HEPATITIS C
     Dosage: FATHER^S DOSING
     Route: 064
     Dates: end: 201208
  4. PEGINTRON [Suspect]
     Active Substance: PEGINTERFERON ALFA-2B
     Indication: HEPATITIS C
     Dosage: FATHER^S DOSING
     Route: 064
     Dates: end: 201208
  5. EPIDUO [Suspect]
     Active Substance: ADAPALENE\BENZOYL PEROXIDE
     Indication: PRODUCT USED FOR UNKNOWN INDICATION
     Dosage: UNK
     Route: 064
  6. COPEGUS [Suspect]
     Active Substance: RIBAVIRIN
     Indication: HEPATITIS C
     Dosage: FATHER^S DOSING
     Route: 064
     Dates: end: 201408

REACTIONS (5)
  - Atrial septal defect [Unknown]
  - Congenital cystic lung [Unknown]
  - Patent ductus arteriosus [Unknown]
  - Stridor [Unknown]
  - Foetal exposure during pregnancy [Recovered/Resolved]

NARRATIVE: CASE EVENT DATE: 2012
